FAERS Safety Report 16372624 (Version 1)
Quarter: 2019Q2

REPORT INFORMATION
  Report Type: Spontaneous
  Country: US (occurrence: US)
  Receive Date: 20190530
  Receipt Date: 20190530
  Transmission Date: 20190711
  Serious: Yes (Other)
  Sender: FDA-Public Use
  Company Number: US-MYLANLABS-2019M1050711

PATIENT
  Age: 35 Year
  Sex: Male

DRUGS (1)
  1. KETAMINE [Suspect]
     Active Substance: KETAMINE
     Indication: PRODUCT USED FOR UNKNOWN INDICATION
     Dosage: CHRONIC DAILY USE
     Route: 065

REACTIONS (3)
  - Drug abuse [Unknown]
  - Biliary tract disorder [Unknown]
  - Urinary tract disorder [Unknown]
